FAERS Safety Report 7868232-8 (Version None)
Quarter: 2011Q4

REPORT INFORMATION
  Report Type: 
  Country: None (occurrence: None)
  Receive Date: 20111028
  Receipt Date: 20111025
  Transmission Date: 20120403
  Serious: Yes (Hospitalization)
  Sender: FDA-Public Use
  Company Number: FR-MERCK-1110FRA00120

PATIENT
  Sex: Male

DRUGS (10)
  1. AMLODIPINE BESYLATE [Suspect]
     Indication: INTRAOCULAR PRESSURE TEST
     Route: 047
     Dates: start: 20110101, end: 20110901
  2. ACETAZOLAMIDE [Concomitant]
     Route: 065
  3. POTASSIUM CHLORIDE [Concomitant]
     Route: 065
  4. TRUSOPT [Suspect]
     Indication: INTRAOCULAR PRESSURE TEST
     Route: 047
     Dates: end: 20110901
  5. TRUSOPT [Suspect]
     Route: 047
     Dates: start: 20111001
  6. LATANOPROST [Suspect]
     Indication: INTRAOCULAR PRESSURE TEST
     Route: 047
     Dates: start: 20010101, end: 20110901
  7. LATANOPROST [Suspect]
     Route: 047
     Dates: start: 20111001
  8. DEXAMETHASONE AND OXYTETRACYCLINE [Concomitant]
     Route: 065
  9. AMLODIPINE BESYLATE [Suspect]
     Route: 047
     Dates: start: 20111001
  10. FLUINDIONE [Concomitant]
     Route: 065

REACTIONS (3)
  - EYELID OEDEMA [None]
  - DEVICE DISLOCATION [None]
  - OCULAR HYPERAEMIA [None]
